FAERS Safety Report 9499563 (Version 1)
Quarter: 2013Q3

REPORT INFORMATION
  Report Type: Spontaneous
  Country: CA (occurrence: CA)
  Receive Date: 20130905
  Receipt Date: 20130905
  Transmission Date: 20140515
  Serious: Yes (Hospitalization)
  Sender: FDA-Public Use
  Company Number: CA-ROCHE-1270461

PATIENT
  Age: 42 Year
  Sex: Female

DRUGS (10)
  1. XELODA [Suspect]
     Indication: PRODUCT USED FOR UNKNOWN INDICATION
     Dosage: THERAPY DURATION: 2 WEEKS
     Route: 048
  2. TYKERB [Suspect]
     Indication: PRODUCT USED FOR UNKNOWN INDICATION
     Dosage: THERAPY DURATION: 35 DAYS
     Route: 048
  3. DEXAMETHASONE [Concomitant]
  4. DILANTIN [Concomitant]
  5. FENTANYL [Concomitant]
     Route: 065
  6. HYDROMORPHONE [Concomitant]
  7. PANTOPRAZOLE [Concomitant]
  8. SENOKOT [Concomitant]
  9. CLOBAZAM [Concomitant]
  10. VITAMIN E [Concomitant]

REACTIONS (2)
  - Breast cancer metastatic [Not Recovered/Not Resolved]
  - Disease progression [Not Recovered/Not Resolved]
